FAERS Safety Report 12467640 (Version 1)
Quarter: 2016Q2

REPORT INFORMATION
  Report Type: Spontaneous
  Country: US (occurrence: None)
  Receive Date: 20160614
  Receipt Date: 20160614
  Transmission Date: 20160815
  Serious: Yes (Hospitalization)
  Sender: FDA-Public Use
  Company Number: None

PATIENT
  Age: 65 Year
  Sex: Male
  Weight: 131.7 kg

DRUGS (1)
  1. CAPSAICIN. [Suspect]
     Active Substance: CAPSAICIN
     Dosage: LOCAL AMOUNT  TOP
     Route: 061
     Dates: start: 20160310, end: 20160312

REACTIONS (6)
  - Rash pustular [None]
  - Cellulitis [None]
  - Crying [None]
  - Burning sensation [None]
  - Oedema [None]
  - Rash [None]

NARRATIVE: CASE EVENT DATE: 20160311
